FAERS Safety Report 10028911 (Version 1)
Quarter: 2014Q1

REPORT INFORMATION
  Report Type: Spontaneous
  Country: ES (occurrence: ES)
  Receive Date: 20140321
  Receipt Date: 20140321
  Transmission Date: 20141002
  Serious: Yes (Other)
  Sender: FDA-Public Use
  Company Number: ES-CELGENEUS-144-20785-14031278

PATIENT
  Age: 71 Year
  Sex: Male

DRUGS (19)
  1. THALIDOMIDE [Suspect]
     Indication: PLASMA CELL MYELOMA
     Route: 048
     Dates: start: 20070621
  2. THALIDOMIDE [Suspect]
     Route: 048
     Dates: start: 200901
  3. THALIDOMIDE [Suspect]
     Route: 048
     Dates: end: 201003
  4. OMEPRAZOLE [Concomitant]
     Indication: GASTRITIS PROPHYLAXIS
     Route: 065
     Dates: start: 2004
  5. INSULIN [Concomitant]
     Indication: PRODUCT USED FOR UNKNOWN INDICATION
     Route: 065
     Dates: start: 200409
  6. VINCRISTINE [Concomitant]
     Indication: PLASMA CELL MYELOMA
     Route: 065
     Dates: start: 20041007
  7. VINCRISTINE [Concomitant]
     Route: 065
     Dates: start: 20070621
  8. CYCLOPHOSPHAMIDE [Concomitant]
     Indication: PLASMA CELL MYELOMA
     Route: 065
     Dates: start: 20041007
  9. CYCLOPHOSPHAMIDE [Concomitant]
     Route: 065
     Dates: start: 20070621
  10. ADRIAMYCIN [Concomitant]
     Indication: PLASMA CELL MYELOMA
     Route: 065
     Dates: start: 20070621
  11. ADRIAMYCIN [Concomitant]
     Route: 065
     Dates: start: 20041007
  12. DEXAMETHASONE [Concomitant]
     Indication: PLASMA CELL MYELOMA
     Route: 065
     Dates: start: 20061031
  13. DEXAMETHASONE [Concomitant]
     Route: 065
     Dates: start: 20070621
  14. DEXAMETHASONE [Concomitant]
     Route: 065
     Dates: start: 20041007
  15. METHYLPREDNISOLONE [Concomitant]
     Indication: PLASMA CELL MYELOMA
     Route: 065
     Dates: start: 20070621
  16. PREDNISONE [Concomitant]
     Indication: PLASMA CELL MYELOMA
     Route: 065
     Dates: start: 20041007
  17. PREDNISONE [Concomitant]
     Route: 065
     Dates: start: 20050118, end: 200502
  18. PREDNISONE [Concomitant]
     Route: 065
     Dates: start: 200901
  19. PREDNISONE [Concomitant]
     Route: 065
     Dates: end: 201003

REACTIONS (2)
  - Osteonecrosis of jaw [Recovered/Resolved]
  - Disease progression [Unknown]
